FAERS Safety Report 7304797-2 (Version None)
Quarter: 2011Q1

REPORT INFORMATION
  Report Type: 
  Country: None (occurrence: None)
  Receive Date: 20110222
  Receipt Date: 20110209
  Transmission Date: 20110831
  Serious: No
  Sender: FDA-Public Use
  Company Number: US-PFIZER INC-US-WYE-H17569910

PATIENT
  Sex: Female
  Weight: 61.2 kg

DRUGS (5)
  1. FIORICET [Suspect]
     Indication: MIGRAINE
     Dosage: UNKNOWN
     Route: 065
  2. VICODIN [Suspect]
     Indication: MIGRAINE
     Dosage: UNKNOWN
     Route: 065
  3. ALPRAZOLAM [Suspect]
     Indication: ANXIETY
     Dosage: UNKNOWN
     Route: 065
  4. PRISTIQ [Suspect]
     Indication: DEPRESSION
     Dosage: 50 MG, 1X/DAY
     Route: 048
     Dates: start: 20100915
  5. FLEXERIL [Suspect]
     Dosage: UNKNOWN
     Route: 065

REACTIONS (2)
  - FEELING ABNORMAL [None]
  - DRUG EXPOSURE DURING PREGNANCY [None]
